FAERS Safety Report 10052468 (Version 1)
Quarter: 2014Q2

REPORT INFORMATION
  Report Type: Spontaneous
  Country: US (occurrence: None)
  Receive Date: 20140401
  Receipt Date: 20140401
  Transmission Date: 20141212
  Serious: Yes (Other)
  Sender: FDA-Public Use
  Company Number: None

PATIENT
  Age: 69 Year
  Sex: Male
  Weight: 68.04 kg

DRUGS (3)
  1. LIOTHYRONINE [Suspect]
     Indication: HYPOTHYROIDISM
     Route: 048
     Dates: start: 20131113, end: 20131209
  2. DAVON [Concomitant]
  3. SYNTHROID [Concomitant]

REACTIONS (1)
  - Alopecia [None]
